FAERS Safety Report 4886390-4 (Version None)
Quarter: 2006Q1

REPORT INFORMATION
  Report Type: 
  Country: None (occurrence: None)
  Receive Date: 20060118
  Receipt Date: 20060105
  Transmission Date: 20060701
  Serious: Yes (Disabling)
  Sender: FDA-Public Use
  Company Number: 2006006067

PATIENT
  Age: 48 Year
  Sex: Male

DRUGS (2)
  1. CELEBREX [Suspect]
     Indication: MUSCULOSKELETAL DISORDER
  2. VIOXX [Suspect]
     Indication: MUSCULOSKELETAL DISORDER

REACTIONS (13)
  - ASTHENIA [None]
  - CARDIOVASCULAR DISORDER [None]
  - CHEST PAIN [None]
  - DEPRESSION [None]
  - DIFFICULTY IN WALKING [None]
  - FATIGUE [None]
  - HYPERTENSION [None]
  - HYPOAESTHESIA [None]
  - MOVEMENT DISORDER [None]
  - OEDEMA PERIPHERAL [None]
  - PAIN [None]
  - PROTEIN URINE PRESENT [None]
  - RENAL DISORDER [None]
